FAERS Safety Report 5133125-6 (Version None)
Quarter: 2006Q4

REPORT INFORMATION
  Report Type: 
  Country: None (occurrence: None)
  Receive Date: 20061017
  Receipt Date: 20061004
  Transmission Date: 20070319
  Serious: Yes (Other)
  Sender: FDA-Public Use
  Company Number: 2006123148

PATIENT
  Age: 70 Year
  Sex: Female

DRUGS (5)
  1. LYRICA [Suspect]
     Indication: NEURALGIA
     Dosage: 150 MG (50 MG, 3 IN 1 D), ORAL
     Route: 048
  2. LEVOTHYROXINE SODIUM [Concomitant]
  3. SPIRONOLAKTON [Concomitant]
  4. BISOPROLOL FUMARATE [Concomitant]
  5. DESLORATADINE [Concomitant]

REACTIONS (6)
  - CHILLS [None]
  - DEAFNESS [None]
  - HYPERHIDROSIS [None]
  - MYALGIA [None]
  - THYROID FUNCTION TEST ABNORMAL [None]
  - TREATMENT NONCOMPLIANCE [None]
